FAERS Safety Report 5108149-5 (Version None)
Quarter: 2006Q3

REPORT INFORMATION
  Report Type: 
  Country: None (occurrence: None)
  Receive Date: 20060919
  Receipt Date: 20060914
  Transmission Date: 20061208
  Serious: Yes (Death, Hospitalization)
  Sender: FDA-Public Use
  Company Number: IT-GLAXOSMITHKLINE-B0438449A

PATIENT
  Age: 65 Year
  Sex: Female

DRUGS (10)
  1. LAMICTAL [Suspect]
     Indication: PSYCHOTIC DISORDER
     Dosage: 50MG PER DAY
     Route: 048
     Dates: start: 20050115, end: 20060212
  2. ALLOPURINOL [Concomitant]
     Indication: DRUG USE FOR UNKNOWN INDICATION
     Dosage: 300MG PER DAY
     Route: 048
  3. BROMAZEPAM [Concomitant]
     Indication: ANXIETY
     Route: 048
  4. FLUOXETINE [Concomitant]
     Indication: DEPRESSION
     Dosage: 190MG PER DAY
     Route: 048
  5. FUROSEMIDE [Concomitant]
     Indication: HYPERTENSION
     Dosage: 50MG PER DAY
     Route: 048
  6. LISINOPRIL [Concomitant]
     Indication: HYPERTENSION
     Route: 048
  7. OLANZAPINE [Concomitant]
     Indication: BIPOLAR DISORDER
     Dosage: 10MG PER DAY
     Route: 048
  8. POTASSIUM CANRENOATE [Concomitant]
     Indication: DRUG USE FOR UNKNOWN INDICATION
     Dosage: 100MG PER DAY
     Route: 048
  9. VENLAFAXIINE HCL [Concomitant]
     Indication: DEPRESSION
     Dosage: 150MG PER DAY
     Route: 048
  10. WARFARIN SODIUM [Concomitant]
     Indication: LEFT VENTRICULAR FAILURE
     Route: 048

REACTIONS (1)
  - THROMBOPHLEBITIS [None]
